FAERS Safety Report 9201549 (Version 2)
Quarter: 2013Q2

REPORT INFORMATION
  Report Type: Spontaneous
  Country: CA (occurrence: CA)
  Receive Date: 20130401
  Receipt Date: 20130409
  Transmission Date: 20140414
  Serious: Yes (Other)
  Sender: FDA-Public Use
  Company Number: CA-AMGEN-CANSP2013022280

PATIENT
  Age: 32 Year
  Sex: Female

DRUGS (3)
  1. ENBREL [Suspect]
     Indication: RHEUMATOID ARTHRITIS
     Dosage: UNK
     Dates: start: 20130225
  2. PREDNISONE [Concomitant]
     Dosage: UNK
  3. HYDROMORPHONE [Concomitant]
     Dosage: UNK

REACTIONS (3)
  - Cellulitis [Recovered/Resolved]
  - Pruritus generalised [Recovered/Resolved]
  - Injection site reaction [Recovered/Resolved]
